FAERS Safety Report 11921875 (Version 2)
Quarter: 2016Q1

REPORT INFORMATION
  Report Type: Spontaneous
  Country: US (occurrence: US)
  Receive Date: 20160115
  Receipt Date: 20160210
  Transmission Date: 20160526
  Serious: No
  Sender: FDA-Public Use
  Company Number: US-ASTRAZENECA-2016SE02656

PATIENT
  Age: 3414 Week
  Sex: Male
  Weight: 88.5 kg

DRUGS (1)
  1. BYDUREON [Suspect]
     Active Substance: EXENATIDE
     Indication: TYPE 2 DIABETES MELLITUS
     Route: 058
     Dates: start: 201509

REACTIONS (4)
  - Injury associated with device [Recovered/Resolved]
  - Injection site nodule [Unknown]
  - Injection site mass [Unknown]
  - Product quality issue [Unknown]

NARRATIVE: CASE EVENT DATE: 20160129
